FAERS Safety Report 16021262 (Version 1)
Quarter: 2019Q2

REPORT INFORMATION
  Report Type: Spontaneous
  Country: US (occurrence: US)
  Receive Date: 20190228
  Receipt Date: 20190228
  Transmission Date: 20190711
  Serious: Yes (Other)
  Sender: FDA-Public Use
  Company Number: None

PATIENT
  Age: 53 Year
  Sex: Female
  Weight: 71.55 kg

DRUGS (1)
  1. CIPROFLOXACINE 500 MG [Suspect]
     Active Substance: CIPROFLOXACIN
     Indication: DIARRHOEA
     Route: 048
     Dates: start: 20180615, end: 20180620

REACTIONS (16)
  - Weight decreased [None]
  - Disorientation [None]
  - Varicose vein [None]
  - Neuropathy peripheral [None]
  - Decreased appetite [None]
  - Memory impairment [None]
  - Sensory disturbance [None]
  - Balance disorder [None]
  - Fall [None]
  - Fatigue [None]
  - Confusional state [None]
  - Pain in extremity [None]
  - Delirium [None]
  - Muscular weakness [None]
  - Conversion disorder [None]
  - Pain [None]

NARRATIVE: CASE EVENT DATE: 20180615
